FAERS Safety Report 11128284 (Version 1)
Quarter: 2015Q2

REPORT INFORMATION
  Report Type: Spontaneous
  Country: HN (occurrence: HN)
  Receive Date: 20150521
  Receipt Date: 20150521
  Transmission Date: 20150821
  Serious: Yes (Other)
  Sender: FDA-Public Use
  Company Number: HN-PFIZER INC-2015170289

PATIENT
  Age: 75 Year
  Sex: Male

DRUGS (2)
  1. SUTENT [Suspect]
     Active Substance: SUNITINIB MALATE
     Dosage: UNK
     Dates: start: 20111001, end: 20150101
  2. NEUROBION /00091901/ [Concomitant]
     Dosage: UNK

REACTIONS (5)
  - Feeling cold [Unknown]
  - Spinal disorder [Unknown]
  - Movement disorder [Unknown]
  - Paraesthesia [Unknown]
  - Peripheral coldness [Recovered/Resolved]

NARRATIVE: CASE EVENT DATE: 20111001
